FAERS Safety Report 18255775 (Version 1)
Quarter: 2020Q3

REPORT INFORMATION
  Report Type: Other
  Country: US (occurrence: US)
  Receive Date: 20200910
  Receipt Date: 20200910
  Transmission Date: 20201103
  Serious: No
  Sender: FDA-Public Use
  Company Number: US-LEADIANT BIOSCIENCES INC-2019STPI000374

PATIENT

DRUGS (9)
  1. CALCIPOTRIENE. [Concomitant]
     Active Substance: CALCIPOTRIENE
  2. KETOCONAZOLE. [Concomitant]
     Active Substance: KETOCONAZOLE
  3. KEPPRA [Concomitant]
     Active Substance: LEVETIRACETAM
  4. LOMUSTINE. [Concomitant]
     Active Substance: LOMUSTINE
  5. VINCASAR [Concomitant]
  6. PROMETHAZINE [Concomitant]
     Active Substance: PROMETHAZINE HYDROCHLORIDE
  7. ONDANSETRON [Concomitant]
     Active Substance: ONDANSETRON
  8. MATULANE [Suspect]
     Active Substance: PROCARBAZINE HYDROCHLORIDE
     Indication: NEOPLASM MALIGNANT
     Dosage: 50 MILLIGRAM, QD
     Route: 048
     Dates: start: 20190617
  9. ALCLOMETASONE [Concomitant]
     Active Substance: ALCLOMETASONE

REACTIONS (1)
  - Platelet count decreased [Unknown]
